FAERS Safety Report 6805107-7 (Version None)
Quarter: 2010Q2

REPORT INFORMATION
  Report Type: 
  Country: None (occurrence: None)
  Receive Date: 20100628
  Receipt Date: 20070817
  Transmission Date: 20101027
  Serious: No
  Sender: FDA-Public Use
  Company Number: US-PFIZER INC-2007068559

PATIENT
  Sex: Female
  Weight: 90.909 kg

DRUGS (4)
  1. GEODON [Suspect]
     Indication: BIPOLAR II DISORDER
     Dates: start: 20070815
  2. PAXIL [Concomitant]
  3. XANAX [Concomitant]
     Dates: start: 20070101
  4. LOTREL [Concomitant]
     Indication: BLOOD PRESSURE

REACTIONS (3)
  - FEELING HOT [None]
  - HYPERHIDROSIS [None]
  - HYPOAESTHESIA [None]
